FAERS Safety Report 20967771 (Version 3)
Quarter: 2022Q3

REPORT INFORMATION
  Report Type: Spontaneous
  Country: US (occurrence: US)
  Receive Date: 20220616
  Receipt Date: 20220708
  Transmission Date: 20221026
  Serious: Yes (Hospitalization, Other)
  Sender: FDA-Public Use
  Company Number: US-GILEAD-2022-0584922

PATIENT
  Age: 67 Year
  Sex: Male

DRUGS (2)
  1. EPCLUSA [Suspect]
     Active Substance: SOFOSBUVIR\VELPATASVIR
     Indication: Hepatitis C
     Dosage: 400-100MG DAILY, NOTICED LAST MONTH AFTER A COUPLE WEEKS OF TAKING EPCLUSA AND RIBAVIRIN
     Route: 065
     Dates: start: 20220505
  2. RIBAVIRIN [Suspect]
     Active Substance: RIBAVIRIN
     Indication: Hepatitis C
     Dosage: 200MG 3 CAPS IN THE MORNING AND EVENING
     Route: 065
     Dates: start: 20220513

REACTIONS (3)
  - Heat stroke [Recovered/Resolved]
  - Nausea [Not Recovered/Not Resolved]
  - Decreased appetite [Not Recovered/Not Resolved]

NARRATIVE: CASE EVENT DATE: 20220501
